FAERS Safety Report 6810104-1 (Version None)
Quarter: 2010Q2

REPORT INFORMATION
  Report Type: 
  Country: None (occurrence: None)
  Receive Date: 20100630
  Receipt Date: 20100616
  Transmission Date: 20101027
  Serious: Yes (Death)
  Sender: FDA-Public Use
  Company Number: AZ-ROCHE-711750

PATIENT
  Age: 19 Year
  Sex: Female

DRUGS (1)
  1. OSELTAMIVIR [Suspect]
     Indication: AVIAN INFLUENZA
     Dosage: DOSE REPORTED AS: ^75 MG TWICE^
     Route: 065
     Dates: start: 20060301

REACTIONS (1)
  - PNEUMONIA VIRAL [None]
